FAERS Safety Report 19666711 (Version 2)
Quarter: 2021Q4

REPORT INFORMATION
  Report Type: Spontaneous
  Country: US (occurrence: US)
  Receive Date: 20210806
  Receipt Date: 20211021
  Transmission Date: 20220303
  Serious: No
  Sender: FDA-Public Use
  Company Number: 2021A668662

PATIENT
  Sex: Female
  Weight: 61.2 kg

DRUGS (1)
  1. TAGRISSO [Suspect]
     Active Substance: OSIMERTINIB
     Indication: Lung neoplasm malignant
     Route: 048

REACTIONS (9)
  - Fatigue [Unknown]
  - Sleep disorder [Unknown]
  - Nasal ulcer [Unknown]
  - Skin ulcer [Unknown]
  - Scleroderma [Not Recovered/Not Resolved]
  - Movement disorder [Not Recovered/Not Resolved]
  - Inflammation [Not Recovered/Not Resolved]
  - Stomatitis [Unknown]
  - Rash [Unknown]
